FAERS Safety Report 5341819-2 (Version None)
Quarter: 2007Q2

REPORT INFORMATION
  Report Type: 
  Country: None (occurrence: None)
  Receive Date: 20070601
  Receipt Date: 20070523
  Transmission Date: 20071010
  Serious: Yes (Hospitalization, Disabling, Other)
  Sender: FDA-Public Use
  Company Number: US-ROCHE-456181

PATIENT
  Age: 18 Year
  Sex: Male
  Weight: 77.1 kg

DRUGS (4)
  1. ACCUTANE [Suspect]
     Indication: ACNE
     Route: 048
     Dates: start: 19890627, end: 19890819
  2. ACCUTANE [Suspect]
     Route: 048
     Dates: start: 19890905, end: 19900126
  3. CORTISPORIN [Concomitant]
     Route: 061
     Dates: start: 19991129
  4. POLYSPORIN [Concomitant]
     Indication: CHEILITIS
     Route: 061
     Dates: start: 19991129

REACTIONS (23)
  - ABDOMINAL PAIN [None]
  - AFFECTIVE DISORDER [None]
  - ANXIETY [None]
  - BACK PAIN [None]
  - CHEILITIS [None]
  - COLITIS [None]
  - COLITIS ULCERATIVE [None]
  - DEPERSONALISATION [None]
  - DEPRESSION [None]
  - FLIGHT OF IDEAS [None]
  - GASTRITIS [None]
  - GASTROINTESTINAL DISORDER [None]
  - INFLAMMATORY BOWEL DISEASE [None]
  - INTESTINAL HAEMORRHAGE [None]
  - IRRITABLE BOWEL SYNDROME [None]
  - MUSCULOSKELETAL DISORDER [None]
  - OESOPHAGITIS [None]
  - PANIC ATTACK [None]
  - PSYCHOMOTOR HYPERACTIVITY [None]
  - RECTAL HAEMORRHAGE [None]
  - SCAR [None]
  - SLEEP DISORDER [None]
  - TENSION [None]
